FAERS Safety Report 6714662-7 (Version None)
Quarter: 2010Q2

REPORT INFORMATION
  Report Type: 
  Country: None (occurrence: None)
  Receive Date: 20100507
  Receipt Date: 20100427
  Transmission Date: 20101027
  Serious: No
  Sender: FDA-Public Use
  Company Number: US-BIOGENIDEC-2010BI004762

PATIENT
  Age: 55 Year
  Sex: Female
  Weight: 45 kg

DRUGS (19)
  1. TYSABRI [Suspect]
     Indication: MULTIPLE SCLEROSIS
     Route: 042
     Dates: start: 20060926, end: 20090908
  2. TYSABRI [Suspect]
     Route: 042
     Dates: start: 20100209
  3. SYNTHROID [Concomitant]
     Route: 048
  4. SYNTHROID [Concomitant]
  5. NIASPAN [Concomitant]
     Route: 048
  6. DIOVAN [Concomitant]
     Route: 048
  7. FOLTX [Concomitant]
     Route: 048
  8. XANAX [Concomitant]
  9. RANITIDINE [Concomitant]
     Route: 048
  10. LUNESTA [Concomitant]
     Indication: SLEEP DISORDER
     Route: 048
  11. NEXIUM [Concomitant]
     Route: 048
  12. ESTRATEST [Concomitant]
  13. LYRICA [Concomitant]
  14. LISINOPRIL [Concomitant]
  15. EXFORGE [Concomitant]
  16. LOTRISONE [Concomitant]
  17. AVELOX [Concomitant]
     Route: 048
     Dates: start: 20091001
  18. FLUTICASONE PROPIONATE [Concomitant]
     Route: 045
  19. ASTELIN [Concomitant]
     Route: 045

REACTIONS (14)
  - BRAIN MASS [None]
  - EAR INFECTION [None]
  - FALL [None]
  - HEADACHE [None]
  - HEARING IMPAIRED [None]
  - HYPOAESTHESIA [None]
  - IMMUNE SYSTEM DISORDER [None]
  - MEMORY IMPAIRMENT [None]
  - MUSCULOSKELETAL PAIN [None]
  - NECK PAIN [None]
  - PNEUMONIA STAPHYLOCOCCAL [None]
  - PULMONARY FIBROSIS [None]
  - ROAD TRAFFIC ACCIDENT [None]
  - WEIGHT DECREASED [None]
